FAERS Safety Report 6184365-9 (Version None)
Quarter: 2009Q2

REPORT INFORMATION
  Report Type: 
  Country: None (occurrence: None)
  Receive Date: 20090508
  Receipt Date: 20090501
  Transmission Date: 20091009
  Serious: Yes (Hospitalization)
  Sender: FDA-Public Use
  Company Number: A0781649A

PATIENT
  Age: 18 Year
  Sex: Female

DRUGS (4)
  1. LAMICTAL [Suspect]
     Dosage: 900MG PER DAY
     Route: 048
  2. KEPPRA [Suspect]
  3. DILANTIN [Suspect]
     Dates: start: 20081201
  4. PROGESTERONE [Concomitant]

REACTIONS (10)
  - ANOREXIA [None]
  - CONSTIPATION [None]
  - CONVULSION [None]
  - DEPRESSION [None]
  - DRUG INTERACTION [None]
  - DRUG TOXICITY [None]
  - NAUSEA [None]
  - OVERDOSE [None]
  - VOMITING [None]
  - WEIGHT DECREASED [None]
